FAERS Safety Report 12461007 (Version 1)
Quarter: 2016Q2

REPORT INFORMATION
  Report Type: Spontaneous
  Country: JP (occurrence: JP)
  Receive Date: 20160613
  Receipt Date: 20160613
  Transmission Date: 20160815
  Serious: Yes (Hospitalization, Other)
  Sender: FDA-Public Use
  Company Number: JP-WARNER CHILCOTT 2016-000863

PATIENT
  Age: 87 Year
  Sex: Female

DRUGS (8)
  1. BORRAZA-G [Concomitant]
     Active Substance: LIDOCAINE\TRIBENOSIDE
  2. MAGMITT [Concomitant]
     Active Substance: MAGNESIUM OXIDE
     Dates: start: 20100910
  3. ACTONEL [Suspect]
     Active Substance: RISEDRONATE SODIUM
     Dates: start: 20160320, end: 2016
  4. BROMELAIN [Concomitant]
     Active Substance: BROMELAINS
     Dates: start: 20100910
  5. NORVASC [Concomitant]
     Active Substance: AMLODIPINE BESYLATE
  6. LOXOPROFEN SODIUM [Concomitant]
     Active Substance: LOXOPROFEN SODIUM
  7. TOCOPHEROL ACETATE [Concomitant]
     Active Substance: .ALPHA.-TOCOPHEROL ACETATE
     Dates: start: 20100910
  8. FAMOTIDINE. [Concomitant]
     Active Substance: FAMOTIDINE

REACTIONS (6)
  - Myositis [None]
  - Fall [None]
  - C-reactive protein increased [None]
  - Back pain [None]
  - Blood potassium decreased [None]
  - Blood creatine phosphokinase increased [None]
